FAERS Safety Report 7823964-2 (Version None)
Quarter: 2011Q4

REPORT INFORMATION
  Report Type: 
  Country: None (occurrence: None)
  Receive Date: 20111019
  Receipt Date: 20111012
  Transmission Date: 20120403
  Serious: Yes (Hospitalization)
  Sender: FDA-Public Use
  Company Number: US-JNJFOC-20110811333

PATIENT
  Sex: Female

DRUGS (2)
  1. DOXORUBICIN HCL [Suspect]
     Dosage: TEMPORARILY HELD
     Route: 042
     Dates: start: 20110121, end: 20110801
  2. DOXORUBICIN HCL [Suspect]
     Indication: OVARIAN CANCER
     Dosage: TEMPORARILY HELD
     Route: 042
     Dates: start: 20110801

REACTIONS (1)
  - INTESTINAL OBSTRUCTION [None]
